FAERS Safety Report 6603004-3 (Version None)
Quarter: 2010Q1

REPORT INFORMATION
  Report Type: 
  Country: None (occurrence: None)
  Receive Date: 20100226
  Receipt Date: 20100218
  Transmission Date: 20100710
  Serious: Yes (Other)
  Sender: FDA-Public Use
  Company Number: US-BAYER-201014507NA

PATIENT
  Age: 22 Year
  Sex: Female

DRUGS (1)
  1. MIRENA [Suspect]
     Indication: CONTRACEPTION
     Route: 015
     Dates: start: 20090201

REACTIONS (8)
  - AMENORRHOEA [None]
  - ARTHRALGIA [None]
  - BLADDER PROLAPSE [None]
  - CONSTIPATION [None]
  - HAEMORRHOIDS [None]
  - MENORRHAGIA [None]
  - URINARY INCONTINENCE [None]
  - VAGINAL PROLAPSE [None]
